FAERS Safety Report 23730885 (Version 1)
Quarter: 2024Q2

REPORT INFORMATION
  Report Type: Report from Study
  Country: US (occurrence: US)
  Receive Date: 20240411
  Receipt Date: 20240411
  Transmission Date: 20240715
  Serious: Yes (Hospitalization, Other)
  Sender: FDA-Public Use
  Company Number: US-SHIRE-US201934394

PATIENT
  Sex: Female

DRUGS (2)
  1. HUMAN IMMUNOGLOBULIN G\HYALURONIDASE RECOMBINANT HUMAN [Suspect]
     Active Substance: HUMAN IMMUNOGLOBULIN G\HYALURONIDASE (HUMAN RECOMBINANT)
     Indication: Primary immunodeficiency syndrome
     Dosage: 35 GRAM, MONTHLY
     Route: 065
  2. HUMAN IMMUNOGLOBULIN G\HYALURONIDASE RECOMBINANT HUMAN [Suspect]
     Active Substance: HUMAN IMMUNOGLOBULIN G\HYALURONIDASE (HUMAN RECOMBINANT)
     Indication: Hypogammaglobulinaemia
     Dosage: UNK
     Route: 065
     Dates: end: 2017

REACTIONS (10)
  - Osteomyelitis [Unknown]
  - Pneumonia [Unknown]
  - Hallucination [Recovering/Resolving]
  - Hip fracture [Recovering/Resolving]
  - Pericardial effusion [Recovering/Resolving]
  - Hypervolaemia [Recovering/Resolving]
  - Fall [Recovering/Resolving]
  - Influenza [Unknown]
  - Infection [Unknown]
  - Product administration interrupted [Unknown]
